FAERS Safety Report 5711439-6 (Version None)
Quarter: 2008Q2

REPORT INFORMATION
  Report Type: 
  Country: None (occurrence: None)
  Receive Date: 20080421
  Receipt Date: 20080411
  Transmission Date: 20081010
  Serious: Yes (Death)
  Sender: FDA-Public Use
  Company Number: JP-MERCK-0803USA03367

PATIENT
  Age: 85 Year
  Sex: Male

DRUGS (7)
  1. ZETIA [Suspect]
     Indication: HYPERCHOLESTEROLAEMIA
     Route: 048
     Dates: start: 20070731, end: 20080222
  2. CRESTOR [Suspect]
     Route: 048
     Dates: start: 20060213, end: 20080222
  3. TICLOPIDINE HYDROCHLORIDE [Concomitant]
     Route: 065
     Dates: start: 20001011
  4. DOSS (ALFACALCIDOL) [Concomitant]
     Route: 065
     Dates: start: 20001011
  5. ETHYL ICOSAPENTATE [Concomitant]
     Route: 065
     Dates: start: 20001011
  6. METILDIGOXIN [Concomitant]
     Route: 065
     Dates: start: 20001011
  7. PAROXETINE HYDROCHLORIDE [Concomitant]
     Route: 065

REACTIONS (5)
  - ANOREXIA [None]
  - CHOLANGITIS [None]
  - PANCREATITIS ACUTE [None]
  - PNEUMONIA ASPIRATION [None]
  - SEPSIS [None]
